FAERS Safety Report 21578312 (Version 1)
Quarter: 2022Q4

REPORT INFORMATION
  Report Type: Spontaneous
  Country: US (occurrence: US)
  Receive Date: 20221110
  Receipt Date: 20221110
  Transmission Date: 20230112
  Serious: Yes (Life-Threatening, Hospitalization, Other)
  Sender: FDA-Public Use
  Company Number: US-ORGANON-O2211USA000314

PATIENT
  Age: 40 Year
  Sex: Female
  Weight: 56.236 kg

DRUGS (1)
  1. NUVARING [Suspect]
     Active Substance: ETHINYL ESTRADIOL\ETONOGESTREL
     Indication: Contraception
     Dosage: ONE RING FOR 3 WEEKS
     Route: 067
     Dates: start: 202208, end: 2022

REACTIONS (3)
  - Cardiac arrest [Recovering/Resolving]
  - Cardiomyopathy [Recovering/Resolving]
  - Electrocardiogram QT prolonged [Recovering/Resolving]

NARRATIVE: CASE EVENT DATE: 20220906
